FAERS Safety Report 5660467-8 (Version None)
Quarter: 2008Q1

REPORT INFORMATION
  Report Type: 
  Country: None (occurrence: None)
  Receive Date: 20080306
  Receipt Date: 20080227
  Transmission Date: 20080703
  Serious: Yes (Hospitalization)
  Sender: FDA-Public Use
  Company Number: MYVW-NO-0802S-0042

PATIENT
  Age: 81 Year
  Sex: Male

DRUGS (2)
  1. MYOVIEW [Suspect]
     Indication: DRUG USE FOR UNKNOWN INDICATION
     Dosage: 0.399 MBQ, SINGLE DOSE, I.V.
     Route: 042
     Dates: start: 20070330, end: 20070330
  2. ADENOSIN [Concomitant]

REACTIONS (4)
  - HYPERGLYCAEMIA [None]
  - INCONTINENCE [None]
  - INFLUENZA LIKE ILLNESS [None]
  - UPPER RESPIRATORY TRACT INFECTION [None]
